FAERS Safety Report 6576324-9 (Version None)
Quarter: 2010Q1

REPORT INFORMATION
  Report Type: 
  Country: None (occurrence: None)
  Receive Date: 20100210
  Receipt Date: 20100204
  Transmission Date: 20100710
  Serious: Yes (Hospitalization, Other)
  Sender: FDA-Public Use
  Company Number: US-ALLERGAN-1001505US

PATIENT
  Sex: Female

DRUGS (5)
  1. BOTOX COSMETIC [Suspect]
     Indication: SKIN WRINKLING
     Dosage: 38 UNITS, SINGLE
     Dates: start: 20091127, end: 20091127
  2. LEXAPRO [Concomitant]
     Dosage: UNK
     Dates: end: 20091126
  3. AMBIEN [Concomitant]
  4. ZANTAC [Concomitant]
  5. UNSPECIFIED MENOPAUSE PILL [Concomitant]

REACTIONS (8)
  - ASTHENIA [None]
  - FACIAL PALSY [None]
  - HEADACHE [None]
  - MUSCULAR WEAKNESS [None]
  - RHINORRHOEA [None]
  - SINUSITIS [None]
  - SKIN ULCER [None]
  - TRIGEMINAL NEURALGIA [None]
